FAERS Safety Report 5198112-0 (Version None)
Quarter: 2006Q4

REPORT INFORMATION
  Report Type: 
  Country: None (occurrence: None)
  Receive Date: 20061228
  Receipt Date: 20061228
  Transmission Date: 20070319
  Serious: Yes (Life-Threatening)
  Sender: FDA-Public Use
  Company Number: None

PATIENT
  Sex: Female
  Weight: 48.9885 kg

DRUGS (1)
  1. TECHNETIUM TC 99 SESTAMIBI [Suspect]
     Indication: CARDIAC STRESS TEST
     Dosage: SEE IMAGE
     Route: 042
     Dates: start: 20060608

REACTIONS (8)
  - ANOREXIA [None]
  - ARTHRALGIA [None]
  - ASTHENIA [None]
  - GAIT DISTURBANCE [None]
  - MOVEMENT DISORDER [None]
  - MYALGIA [None]
  - MYOCARDIAL ISCHAEMIA [None]
  - WEIGHT BEARING DIFFICULTY [None]
